FAERS Safety Report 22157314 (Version 1)
Quarter: 2023Q1

REPORT INFORMATION
  Report Type: Other
  Country: IE (occurrence: None)
  Receive Date: 20230330
  Receipt Date: 20230330
  Transmission Date: 20230418
  Serious: Yes (Other)
  Sender: FDA-Public Use
  Company Number: IE-ROCHE-3319448

PATIENT
  Age: 14 Year
  Sex: Male

DRUGS (2)
  1. TOCILIZUMAB [Suspect]
     Active Substance: TOCILIZUMAB
     Indication: Juvenile idiopathic arthritis
     Route: 042
  2. ADALIMUMAB [Concomitant]
     Active Substance: ADALIMUMAB

REACTIONS (1)
  - Crohn^s disease [Not Recovered/Not Resolved]
